FAERS Safety Report 5371719-3 (Version None)
Quarter: 2007Q2

REPORT INFORMATION
  Report Type: 
  Country: None (occurrence: None)
  Receive Date: 20070625
  Receipt Date: 20070613
  Transmission Date: 20071010
  Serious: Yes (Other)
  Sender: FDA-Public Use
  Company Number: B0476162A

PATIENT
  Age: 40 Year
  Sex: Male

DRUGS (7)
  1. ZIDOVUDINE [Suspect]
     Indication: HIV INFECTION
     Dosage: 300 MG
  2. EPIVIR [Suspect]
     Dosage: 150 MG
  3. EFAVIRENZ [Suspect]
     Dosage: 600 MG
  4. RIFAMPIN [Suspect]
     Dosage: 600 MG
  5. ISONIAZID [Suspect]
     Dosage: 300 MG
  6. PYRAZINAMIDE [Suspect]
     Dosage: 1200 MG
  7. ETHAMBUTOL HYDROCHLORIDE [Suspect]
     Dosage: 800 MG

REACTIONS (9)
  - BLINDNESS UNILATERAL [None]
  - COUGH [None]
  - DISORDER OF GLOBE [None]
  - IMMUNE SYSTEM DISORDER [None]
  - IRIDOCELE [None]
  - LUNG INFILTRATION [None]
  - PAIN [None]
  - TUBERCULOSIS OF EYE [None]
  - UVEITIS [None]
